FAERS Safety Report 21372376 (Version 1)
Quarter: 2022Q3

REPORT INFORMATION
  Report Type: Spontaneous
  Country: GR (occurrence: GR)
  Receive Date: 20220924
  Receipt Date: 20220924
  Transmission Date: 20221026
  Serious: Yes (Other)
  Sender: FDA-Public Use
  Company Number: GR-AMGEN-GRCSP2022161695

PATIENT
  Age: 79 Year
  Sex: Male

DRUGS (3)
  1. ETELCALCETIDE [Suspect]
     Active Substance: ETELCALCETIDE
     Indication: Hyperparathyroidism primary
     Dosage: 15 MILLIGRAM, 3 TIMES, QWK
     Route: 065
  2. ETELCALCETIDE [Suspect]
     Active Substance: ETELCALCETIDE
     Indication: Parathyroid tumour benign
  3. PARICALCITOL [Concomitant]
     Active Substance: PARICALCITOL
     Dosage: 5 MILLIGRAM, 2 TIMES, QWK

REACTIONS (6)
  - Hip fracture [Unknown]
  - Aortic aneurysm repair [Unknown]
  - Stupor [Unknown]
  - Hypercalcaemia [Recovered/Resolved]
  - Communication disorder [Recovered/Resolved]
  - Off label use [Unknown]
